FAERS Safety Report 10903797 (Version 2)
Quarter: 2015Q2

REPORT INFORMATION
  Report Type: Report from Study
  Country: US (occurrence: None)
  Receive Date: 20150306
  Receipt Date: 20150402
  Transmission Date: 20150821
  Serious: Yes (Other)
  Sender: FDA-Public Use
  Company Number: US-001744

PATIENT
  Sex: Female

DRUGS (4)
  1. PREVACID [Concomitant]
     Active Substance: LANSOPRAZOLE
  2. GATTEX [Suspect]
     Active Substance: TEDUGLUTIDE\WATER
     Indication: SHORT-BOWEL SYNDROME
     Dosage: (DF SUBCUTANEOUS)
     Route: 058
     Dates: start: 20140509
  3. CAMPHORATED TINCTURE OF OPIUM [Concomitant]
  4. SOLUTIONS FOR PARENTERAL NUTRITION [Concomitant]
     Active Substance: AMINO ACIDS\DEXTROSE\ELECTROLYTES NOS

REACTIONS (5)
  - Cataract [None]
  - Urticaria [None]
  - Abdominal discomfort [None]
  - Macular degeneration [None]
  - Drug hypersensitivity [None]
